FAERS Safety Report 6540274-4 (Version None)
Quarter: 2010Q1

REPORT INFORMATION
  Report Type: 
  Country: None (occurrence: None)
  Receive Date: 20100115
  Receipt Date: 20090408
  Transmission Date: 20100710
  Serious: No
  Sender: FDA-Public Use
  Company Number: US-ABBOTT-09P-163-0567450-00

PATIENT
  Sex: Male

DRUGS (3)
  1. ADVICOR [Suspect]
     Indication: BLOOD CHOLESTEROL
     Dosage: 1000/40MG QD
     Route: 048
     Dates: start: 20070101, end: 20070101
  2. ADVICOR [Suspect]
     Indication: HYPERLIPIDAEMIA
  3. ZETIA [Suspect]
     Indication: HYPERLIPIDAEMIA
     Dosage: UNKNOWN DOSE
     Route: 048
     Dates: start: 20070101, end: 20070101

REACTIONS (2)
  - DRUG INEFFECTIVE [None]
  - NOCTURIA [None]
